FAERS Safety Report 4483927-4 (Version None)
Quarter: 2004Q4

REPORT INFORMATION
  Report Type: 
  Country: None (occurrence: None)
  Receive Date: 20041025
  Receipt Date: 20040915
  Transmission Date: 20050328
  Serious: No
  Sender: FDA-Public Use
  Company Number: PHBS2004JP12352

PATIENT
  Age: 33 Year
  Sex: Female
  Weight: 46 kg

DRUGS (7)
  1. NEORAL [Suspect]
     Indication: RENAL TRANSPLANT
     Dosage: 150 MG/D
     Route: 048
     Dates: start: 20040404, end: 20040405
  2. NEORAL [Suspect]
     Dosage: 350 MG/D
     Route: 048
     Dates: start: 20040406, end: 20040407
  3. RENAGEL [Suspect]
     Dosage: 4 G/D
     Route: 048
     Dates: start: 20040331, end: 20040407
  4. SIMULECT [Concomitant]
     Indication: RENAL TRANSPLANT
     Dosage: 20 MG/D
  5. PREDNISOLONE [Concomitant]
     Indication: RENAL TRANSPLANT
  6. MYCOPHENOLATE MOFETIL [Concomitant]
  7. SANDIMMUNE [Concomitant]
     Indication: RENAL TRANSPLANT
     Dosage: 1.7 MG/KG, BID
     Dates: end: 20040403

REACTIONS (5)
  - DRUG INTERACTION [None]
  - DRUG INTERACTION INHIBITION [None]
  - DRUG LEVEL BELOW THERAPEUTIC [None]
  - MALABSORPTION [None]
  - RENAL TRANSPLANT [None]
